FAERS Safety Report 24426913 (Version 1)
Quarter: 2024Q4

REPORT INFORMATION
  Report Type: Spontaneous
  Country: RU (occurrence: RU)
  Receive Date: 20241011
  Receipt Date: 20241011
  Transmission Date: 20250115
  Serious: Yes (Other)
  Sender: ROCHE
  Company Number: RU-ROCHE-10000098552

PATIENT
  Sex: Female

DRUGS (3)
  1. TRASTUZUMAB [Suspect]
     Active Substance: TRASTUZUMAB
     Indication: Breast cancer
     Route: 065
     Dates: start: 20240524
  2. PERJETA [Suspect]
     Active Substance: PERTUZUMAB
     Indication: Breast cancer
     Route: 065
     Dates: start: 20240524
  3. DOCETAXEL [Suspect]
     Active Substance: DOCETAXEL
     Indication: Breast cancer
     Route: 065
     Dates: start: 20240524

REACTIONS (8)
  - Asthenia [Unknown]
  - Dyspepsia [Unknown]
  - Peripheral sensory neuropathy [Unknown]
  - Cardiac failure [Unknown]
  - Renal failure [Unknown]
  - Enterocolitis [Unknown]
  - Glossitis [Unknown]
  - Mucosal inflammation [Unknown]
